FAERS Safety Report 17032294 (Version 1)
Quarter: 2019Q4

REPORT INFORMATION
  Report Type: Spontaneous
  Country: TR (occurrence: TR)
  Receive Date: 20191114
  Receipt Date: 20191114
  Transmission Date: 20200122
  Serious: Yes (Other)
  Sender: FDA-Public Use
  Company Number: TR-ASTRAZENECA-2019SF59923

PATIENT
  Age: 79 Year
  Sex: Female

DRUGS (5)
  1. IRESSA [Suspect]
     Active Substance: GEFITINIB
     Route: 048
  2. METFORMIN [Concomitant]
     Active Substance: METFORMIN HYDROCHLORIDE
     Indication: DIABETES MELLITUS
     Route: 048
  3. PROBIOTIC SUPPLEMENT [Concomitant]
  4. BELOC [Concomitant]
     Indication: CARDIAC DISORDER
     Dosage: ONE TABLET-STARTED BEFORE INITIATION OF IRESSA
  5. METPAMID [Concomitant]
     Active Substance: METOCLOPRAMIDE
     Indication: NAUSEA
     Dosage: TWICE A DAY ONE IN EACH USAGE

REACTIONS (4)
  - Metastases to bone [Unknown]
  - Tachycardia [Unknown]
  - Decreased appetite [Not Recovered/Not Resolved]
  - Diarrhoea [Not Recovered/Not Resolved]
